FAERS Safety Report 8961789 (Version 1)
Quarter: 2012Q4

REPORT INFORMATION
  Report Type: 
  Country: GB (occurrence: GB)
  Receive Date: 20121213
  Receipt Date: 20121213
  Transmission Date: 20130627
  Serious: Yes (Other)
  Sender: FDA-Public Use
  Company Number: GB-009507513-2012SP019884

PATIENT
  Age: 34 Year
  Sex: Female

DRUGS (3)
  1. CLARITYN ALLERGY [Suspect]
     Indication: HYPERSENSITIVITY
     Dosage: 10 mg, qd
     Route: 048
  2. CLARITYN ALLERGY [Suspect]
     Indication: RHINITIS
  3. ASPIRIN [Concomitant]
     Dosage: 75 mg, UNK
     Dates: start: 20120211

REACTIONS (2)
  - Amniotic fluid volume decreased [Unknown]
  - Exposure during pregnancy [Unknown]
